FAERS Safety Report 18320555 (Version 2)
Quarter: 2020Q4

REPORT INFORMATION
  Report Type: Spontaneous
  Country: US (occurrence: US)
  Receive Date: 20200928
  Receipt Date: 20201015
  Transmission Date: 20210113
  Serious: Yes (Other)
  Sender: FDA-Public Use
  Company Number: US-AMNEAL PHARMACEUTICALS-2020-AMRX-02887

PATIENT
  Age: 90 Year
  Sex: Male

DRUGS (1)
  1. GUAIFENESIN. [Suspect]
     Active Substance: GUAIFENESIN
     Indication: PRODUCTIVE COUGH
     Dosage: 1 TABLETS, QID
     Route: 048
     Dates: start: 202003

REACTIONS (4)
  - Choking [Recovered/Resolved]
  - Scratch [Recovered/Resolved]
  - Foreign body in throat [Recovered/Resolved]
  - Product use complaint [Recovering/Resolving]

NARRATIVE: CASE EVENT DATE: 202003
